FAERS Safety Report 23565860 (Version 1)
Quarter: 2024Q1

REPORT INFORMATION
  Report Type: Spontaneous
  Country: US (occurrence: None)
  Receive Date: 20240224
  Receipt Date: 20240224
  Transmission Date: 20240410
  Serious: Yes (Life-Threatening, Disabling, Other)
  Sender: FDA-Public Use
  Company Number: None

PATIENT
  Age: 58 Year
  Sex: Female
  Weight: 45 kg

DRUGS (11)
  1. LEVOFLOXACIN [Suspect]
     Active Substance: LEVOFLOXACIN
     Indication: Postoperative care
     Dosage: 1 TABLET TWICE A DAY ORAL?
     Route: 048
     Dates: start: 20240113, end: 20240118
  2. DEPAKOTE [Concomitant]
     Active Substance: DIVALPROEX SODIUM
  3. BANZEL [Concomitant]
     Active Substance: RUFINAMIDE
  4. EPIDIOLEX [Concomitant]
     Active Substance: CANNABIDIOL
  5. FLUOXETINE [Concomitant]
     Active Substance: FLUOXETINE HYDROCHLORIDE
  6. VNS [Concomitant]
  7. FOLIC ACID [Concomitant]
     Active Substance: FOLIC ACID
  8. HYDROCORTISONE [Concomitant]
     Active Substance: HYDROCORTISONE
  9. VITAMINS [Concomitant]
     Active Substance: VITAMINS
  10. VitaminD [Concomitant]
  11. CALCIUM [Concomitant]
     Active Substance: CALCIUM

REACTIONS (11)
  - Vomiting [None]
  - Asthenia [None]
  - Weight decreased [None]
  - Toxicity to various agents [None]
  - Muscle atrophy [None]
  - Gait disturbance [None]
  - Lethargy [None]
  - Brain fog [None]
  - Dysstasia [None]
  - Decreased appetite [None]
  - Hospice care [None]

NARRATIVE: CASE EVENT DATE: 20240112
